FAERS Safety Report 6942496-7 (Version None)
Quarter: 2010Q3

REPORT INFORMATION
  Report Type: 
  Country: None (occurrence: None)
  Receive Date: 20100826
  Receipt Date: 20100715
  Transmission Date: 20110219
  Serious: Yes (Hospitalization, Other)
  Sender: FDA-Public Use
  Company Number: US-BAXTER-2010BH003465

PATIENT
  Age: 35 Year
  Sex: Female
  Weight: 65 kg

DRUGS (13)
  1. HEPARIN SODIUM INJECTION [Suspect]
     Indication: CHOLECYSTECTOMY
     Route: 042
     Dates: start: 20080512, end: 20080512
  2. HEPARIN SODIUM INJECTION [Suspect]
     Indication: PULMONARY EMBOLISM
     Route: 042
     Dates: start: 20080512, end: 20080512
  3. HEPARIN SODIUM INJECTION [Suspect]
     Route: 050
     Dates: start: 20080501, end: 20080501
  4. HEPARIN SODIUM INJECTION [Suspect]
     Route: 050
     Dates: start: 20080501, end: 20080501
  5. SALINE [Concomitant]
     Indication: PRODUCT USED FOR UNKNOWN INDICATION
     Route: 065
  6. ACETAMINOPHEN [Concomitant]
     Indication: PRODUCT USED FOR UNKNOWN INDICATION
     Route: 065
  7. ZOFRAN [Concomitant]
     Indication: PRODUCT USED FOR UNKNOWN INDICATION
     Route: 065
  8. DEMEROL [Concomitant]
     Indication: PRODUCT USED FOR UNKNOWN INDICATION
     Route: 065
  9. PHENERGAN [Concomitant]
     Indication: PRODUCT USED FOR UNKNOWN INDICATION
     Route: 065
  10. ONDANSETRON HYDROCHLORIDE [Concomitant]
     Indication: PRODUCT USED FOR UNKNOWN INDICATION
     Route: 065
  11. 5% DEXTROSE INJECTION [Concomitant]
     Indication: PRODUCT USED FOR UNKNOWN INDICATION
     Route: 042
  12. LEVOFLOXACIN [Concomitant]
     Indication: PRODUCT USED FOR UNKNOWN INDICATION
     Route: 065
  13. ACETAMINOPHEN [Concomitant]
     Indication: PRODUCT USED FOR UNKNOWN INDICATION
     Route: 065

REACTIONS (11)
  - ABDOMINAL PAIN UPPER [None]
  - ATELECTASIS [None]
  - CHEST PAIN [None]
  - DYSPNOEA [None]
  - ELECTROCARDIOGRAM T WAVE ABNORMAL [None]
  - HEADACHE [None]
  - NAUSEA [None]
  - PLEURAL EFFUSION [None]
  - PYREXIA [None]
  - RASH [None]
  - YELLOW SKIN [None]
